FAERS Safety Report 17445496 (Version 1)
Quarter: 2020Q1

REPORT INFORMATION
  Report Type: Spontaneous
  Country: GB (occurrence: GB)
  Receive Date: 20200221
  Receipt Date: 20200221
  Transmission Date: 20200409
  Serious: Yes (Hospitalization)
  Sender: FDA-Public Use
  Company Number: GB-TEVA-2020-GB-1189438

PATIENT
  Sex: Male

DRUGS (2)
  1. PROGRAF 2MG [Concomitant]
  2. MYFENAX [Suspect]
     Active Substance: MYCOPHENOLATE MOFETIL
     Dosage: 1000 MILLIGRAM DAILY;
     Route: 065
     Dates: start: 20190206

REACTIONS (2)
  - Infection [Unknown]
  - Condition aggravated [Unknown]
